FAERS Safety Report 9591700 (Version 2)
Quarter: 2013Q4

REPORT INFORMATION
  Report Type: Spontaneous
  Country: US (occurrence: US)
  Receive Date: 20131004
  Receipt Date: 20131004
  Transmission Date: 20140711
  Serious: No
  Sender: FDA-Public Use
  Company Number: US-AMGEN-USASP2012068749

PATIENT
  Age: 42 Year
  Sex: Male

DRUGS (7)
  1. ENBREL [Suspect]
     Indication: RHEUMATOID ARTHRITIS
     Dosage: 50 MG, QWK
     Route: 058
     Dates: start: 20120724
  2. METHOTREXATE [Concomitant]
     Dosage: 10 TABLETS BY MOUTH WEEKLY
     Route: 048
     Dates: start: 20111117
  3. ALPRAZOLAM [Concomitant]
     Dosage: 0.5 TABLET, PRN
     Route: 048
     Dates: start: 20081209
  4. MELOXICAM [Concomitant]
     Dosage: 1 TABLET DAILY WITH FOOD
     Route: 048
     Dates: start: 20120104
  5. SULFAZINE EC [Concomitant]
     Dosage: 3 TABLET BY MOUTH 2 TIMES A DAY
     Route: 048
     Dates: start: 20110615
  6. FOLIC ACID [Concomitant]
     Dosage: 1 MG, QD
     Dates: start: 20101118
  7. LIDOCAINE HCL [Concomitant]
     Dosage: UNK UNK, PRN

REACTIONS (14)
  - Respiratory tract congestion [Not Recovered/Not Resolved]
  - Headache [Not Recovered/Not Resolved]
  - Nausea [Not Recovered/Not Resolved]
  - Vomiting [Not Recovered/Not Resolved]
  - Malaise [Not Recovered/Not Resolved]
  - Cough [Not Recovered/Not Resolved]
  - Weight decreased [Unknown]
  - Dyspepsia [Unknown]
  - Diarrhoea [Unknown]
  - Pain [Unknown]
  - Musculoskeletal pain [Unknown]
  - Insomnia [Unknown]
  - Sinusitis [Not Recovered/Not Resolved]
  - Upper respiratory tract infection [Unknown]
